FAERS Safety Report 11707651 (Version 1)
Quarter: 2015Q4

REPORT INFORMATION
  Report Type: Spontaneous
  Country: US (occurrence: US)
  Receive Date: 20151104
  Receipt Date: 20151104
  Transmission Date: 20160304
  Serious: Yes (Other)
  Sender: FDA-Public Use
  Company Number: US-ELI_LILLY_AND_COMPANY-US201108001686

PATIENT
  Sex: Female

DRUGS (1)
  1. FORTEO [Suspect]
     Active Substance: TERIPARATIDE
     Dosage: 20 UG, QD
     Route: 058
     Dates: start: 20110204

REACTIONS (10)
  - Somnolence [Unknown]
  - Skin sensitisation [Unknown]
  - Tremor [Unknown]
  - Depression [Unknown]
  - Fatigue [Unknown]
  - Pruritus [Unknown]
  - Flank pain [Unknown]
  - Muscle spasms [Unknown]
  - Hypertension [Unknown]
  - Musculoskeletal chest pain [Unknown]
